FAERS Safety Report 7390467-1 (Version None)
Quarter: 2011Q2

REPORT INFORMATION
  Report Type: 
  Country: None (occurrence: None)
  Receive Date: 20110401
  Receipt Date: 20110325
  Transmission Date: 20111010
  Serious: Yes (Hospitalization, Other)
  Sender: FDA-Public Use
  Company Number: US-ABBOTT-11P-163-0714978-00

PATIENT
  Sex: Female
  Weight: 68.1 kg

DRUGS (8)
  1. HUMIRA [Suspect]
     Indication: CROHN'S DISEASE
     Dates: start: 20061201, end: 20070701
  2. LANSOPRAZOLE [Concomitant]
     Indication: PRODUCT USED FOR UNKNOWN INDICATION
  3. LEVOTHYROXINE SODIUM [Concomitant]
     Indication: THYROID DISORDER
     Dosage: DAILY DOSE: 50 MCG
     Dates: start: 20110101
  4. PENTASA [Concomitant]
     Indication: CROHN'S DISEASE
  5. HUMIRA [Suspect]
     Indication: CROHN'S DISEASE
     Route: 058
     Dates: start: 20100801
  6. PREDNISONE [Concomitant]
     Indication: BLOOD CORTISOL DECREASED
  7. PREDNISONE [Concomitant]
     Indication: CROHN'S DISEASE
  8. LEVOTHYROXINE SODIUM [Concomitant]
     Dosage: DAILY DOSE: 25 MCG
     Dates: end: 20110101

REACTIONS (20)
  - DEHYDRATION [None]
  - FUNGAL SKIN INFECTION [None]
  - THYROID DISORDER [None]
  - FATIGUE [None]
  - FEELING COLD [None]
  - URETHRAL INJURY [None]
  - THYROID CYST [None]
  - TYPE 2 DIABETES MELLITUS [None]
  - RENAL FAILURE CHRONIC [None]
  - ENDOMETRIOSIS [None]
  - PRURITUS [None]
  - ORAL FUNGAL INFECTION [None]
  - STAPHYLOCOCCAL INFECTION [None]
  - HYPOTENSION [None]
  - CHRONIC FATIGUE SYNDROME [None]
  - WEIGHT INCREASED [None]
  - CROHN'S DISEASE [None]
  - RENAL IMPAIRMENT [None]
  - ABDOMINAL PAIN LOWER [None]
  - HOT FLUSH [None]
